FAERS Safety Report 19380229 (Version 2)
Quarter: 2024Q4

REPORT INFORMATION
  Report Type: Spontaneous
  Country: BE (occurrence: BE)
  Receive Date: 20210607
  Receipt Date: 20241115
  Transmission Date: 20250115
  Serious: Yes (Other)
  Sender: AUROBINDO
  Company Number: BE-NORGINE LIMITED-NOR202101835

PATIENT
  Age: 24 Year
  Sex: Female

DRUGS (2)
  1. ONDANSETRON [Suspect]
     Active Substance: ONDANSETRON
     Indication: Nausea
     Dosage: UNK
     Route: 065
  2. ONDANSETRON [Suspect]
     Active Substance: ONDANSETRON
     Indication: Vomiting

REACTIONS (7)
  - Cytotoxic oedema [Recovered/Resolved]
  - Cerebral ischaemia [Recovered/Resolved]
  - Cerebral artery stenosis [Not Recovered/Not Resolved]
  - Reversible cerebral vasoconstriction syndrome [Recovered/Resolved]
  - Vasogenic cerebral oedema [Recovered/Resolved]
  - Epilepsy [Recovered/Resolved]
  - Subarachnoid haemorrhage [Recovered/Resolved]
